FAERS Safety Report 23663349 (Version 2)
Quarter: 2024Q2

REPORT INFORMATION
  Report Type: Spontaneous
  Country: ES (occurrence: ES)
  Receive Date: 20240322
  Receipt Date: 20240415
  Transmission Date: 20240716
  Serious: Yes (Hospitalization, Other)
  Sender: FDA-Public Use
  Company Number: ES-BRISTOL-MYERS SQUIBB COMPANY-2024-044060

PATIENT
  Age: 74 Year
  Sex: Male

DRUGS (10)
  1. LUSPATERCEPT [Suspect]
     Active Substance: LUSPATERCEPT
     Indication: Myelodysplastic syndrome
     Route: 058
     Dates: start: 20230927
  2. LUSPATERCEPT [Suspect]
     Active Substance: LUSPATERCEPT
     Route: 058
     Dates: start: 20231201
  3. LUSPATERCEPT [Suspect]
     Active Substance: LUSPATERCEPT
     Dosage: DOSE : 1.75MG/KG; 1,75 MG/KG EVERY/3 WEEKS START: 27-SEP-2023 WITH DOSE 1MG/KG
     Route: 058
     Dates: start: 20240111, end: 20240311
  4. ARANESP [Concomitant]
     Active Substance: DARBEPOETIN ALFA
     Indication: Anaemia
     Route: 058
     Dates: start: 20240223, end: 20240311
  5. EXJADE [Concomitant]
     Active Substance: DEFERASIROX
     Indication: Hyperferritinaemia
     Route: 048
     Dates: start: 20230607, end: 20240311
  6. ASPIRIN [Concomitant]
     Active Substance: ASPIRIN
     Indication: Product used for unknown indication
     Route: 048
  7. SERTRALINE [Concomitant]
     Active Substance: SERTRALINE HYDROCHLORIDE
     Indication: Product used for unknown indication
     Route: 048
  8. LORMETAZEPAM [Concomitant]
     Active Substance: LORMETAZEPAM
     Indication: Product used for unknown indication
     Route: 048
  9. TAMSULOSIN [Concomitant]
     Active Substance: TAMSULOSIN
     Indication: Benign prostatic hyperplasia
     Route: 048
  10. AMLODIPINE AND VALSARTAN [Concomitant]
     Active Substance: AMLODIPINE\VALSARTAN
     Indication: Head injury
     Dosage: 5MG/160MG
     Route: 048

REACTIONS (1)
  - Pericardial effusion [Recovering/Resolving]

NARRATIVE: CASE EVENT DATE: 20240311
